FAERS Safety Report 18660181 (Version 1)
Quarter: 2020Q4

REPORT INFORMATION
  Report Type: Spontaneous
  Country: IR (occurrence: IR)
  Receive Date: 20201223
  Receipt Date: 20201223
  Transmission Date: 20210114
  Serious: Yes (Hospitalization)
  Sender: FDA-Public Use
  Company Number: IR-ENDO PHARMACEUTICALS INC-2020-007886

PATIENT
  Age: 28 Year
  Sex: Male

DRUGS (17)
  1. VANCOMYCIN [Concomitant]
     Active Substance: VANCOMYCIN
     Indication: PRODUCT USED FOR UNKNOWN INDICATION
     Dosage: UNK
  2. GABAPENTIN. [Concomitant]
     Active Substance: GABAPENTIN
     Indication: PRODUCT USED FOR UNKNOWN INDICATION
     Dosage: UNK
  3. HEPARIN [Concomitant]
     Active Substance: HEPARIN SODIUM
     Indication: PRODUCT USED FOR UNKNOWN INDICATION
  4. QUETIAPINE. [Concomitant]
     Active Substance: QUETIAPINE
     Indication: PRODUCT USED FOR UNKNOWN INDICATION
     Dosage: UNK
  5. METHADONE [Concomitant]
     Active Substance: METHADONE HYDROCHLORIDE
     Indication: PRODUCT USED FOR UNKNOWN INDICATION
     Dosage: UNK
  6. COLISTIMETHATE SODIUM. [Suspect]
     Active Substance: COLISTIMETHATE SODIUM
     Indication: PSEUDOMONAS TEST POSITIVE
     Dosage: 4.5 MILLION UNIT, BID
     Route: 065
  7. PHENYTOIN. [Concomitant]
     Active Substance: PHENYTOIN
     Indication: GENERALISED TONIC-CLONIC SEIZURE
     Dosage: UNK
  8. PANTOPRAZOLE [Concomitant]
     Active Substance: PANTOPRAZOLE
     Indication: PRODUCT USED FOR UNKNOWN INDICATION
  9. LEVOFLOXACIN. [Concomitant]
     Active Substance: LEVOFLOXACIN
     Indication: PNEUMONIA
     Dosage: UNK
  10. CLONIDINE. [Concomitant]
     Active Substance: CLONIDINE
     Indication: PRODUCT USED FOR UNKNOWN INDICATION
     Dosage: UNK
  11. MEROPENEM. [Concomitant]
     Active Substance: MEROPENEM
     Indication: PRODUCT USED FOR UNKNOWN INDICATION
     Dosage: UNK
  12. COLISTIMETHATE SODIUM. [Suspect]
     Active Substance: COLISTIMETHATE SODIUM
     Indication: ACINETOBACTER TEST POSITIVE
     Dosage: 4.5 MILLION UNITS, BID
     Route: 065
  13. FENTANYL. [Concomitant]
     Active Substance: FENTANYL
     Indication: WITHDRAWAL SYNDROME
  14. THIOPENTAL [Concomitant]
     Active Substance: THIOPENTAL
     Indication: PRODUCT USED FOR UNKNOWN INDICATION
  15. COLISTIMETHATE SODIUM. [Suspect]
     Active Substance: COLISTIMETHATE SODIUM
     Indication: PNEUMONIA
     Dosage: 9 MILLION UNITS, SINGLE LOADING DOSE
     Route: 065
  16. PHENYTOIN. [Concomitant]
     Active Substance: PHENYTOIN
     Dosage: 100 MG, TID
     Route: 065
  17. MIDAZOLAM. [Concomitant]
     Active Substance: MIDAZOLAM
     Indication: WITHDRAWAL SYNDROME

REACTIONS (2)
  - Drug reaction with eosinophilia and systemic symptoms [Recovering/Resolving]
  - Hyperbilirubinaemia [Recovering/Resolving]
